FAERS Safety Report 7236428-4 (Version None)
Quarter: 2011Q1

REPORT INFORMATION
  Report Type: 
  Country: None (occurrence: None)
  Receive Date: 20110120
  Receipt Date: 20110111
  Transmission Date: 20110831
  Serious: Yes (Hospitalization)
  Sender: FDA-Public Use
  Company Number: PHHO2011KR00855

PATIENT
  Sex: Female
  Weight: 45 kg

DRUGS (3)
  1. AFINITOR [Suspect]
     Indication: T-CELL LYMPHOMA
     Dosage: 5 MG, QD
     Route: 048
     Dates: start: 20101228, end: 20110107
  2. CYCLOPHOSPHAMIDE [Concomitant]
  3. ADRIAMYCIN PFS [Concomitant]

REACTIONS (1)
  - FEBRILE NEUTROPENIA [None]
